FAERS Safety Report 6547145-8 (Version None)
Quarter: 2010Q1

REPORT INFORMATION
  Report Type: 
  Country: None (occurrence: None)
  Receive Date: 20100122
  Receipt Date: 20100119
  Transmission Date: 20100710
  Serious: Yes (Hospitalization, Disabling, Other)
  Sender: FDA-Public Use
  Company Number: US-MERCK-0906USA04972

PATIENT
  Age: 54 Year
  Sex: Female
  Weight: 81 kg

DRUGS (14)
  1. FOSAMAX [Suspect]
     Indication: OSTEOPOROSIS PROPHYLAXIS
     Route: 048
     Dates: start: 20030301, end: 20030801
  2. FOSAMAX [Suspect]
     Route: 048
     Dates: start: 20030801, end: 20071201
  3. FOSAMAX [Suspect]
     Route: 048
     Dates: start: 20030301, end: 20030801
  4. FOSAMAX [Suspect]
     Indication: OSTEOPENIA
     Route: 048
     Dates: start: 20030301, end: 20030801
  5. FOSAMAX [Suspect]
     Route: 048
     Dates: start: 20030801, end: 20071201
  6. FOSAMAX [Suspect]
     Route: 048
     Dates: start: 20030301, end: 20030801
  7. FOSAMAX PLUS D [Concomitant]
     Indication: OSTEOPENIA
     Route: 048
     Dates: start: 20061026, end: 20080725
  8. OS-CAL [Concomitant]
     Indication: OSTEOPENIA
     Route: 065
  9. VITAMIN D (UNSPECIFIED) [Concomitant]
     Indication: OSTEOPENIA
     Route: 065
  10. PREVACID [Concomitant]
     Indication: GASTROOESOPHAGEAL REFLUX DISEASE
     Route: 065
     Dates: start: 19950101
  11. PAXIL [Concomitant]
     Indication: DEPRESSION
     Route: 065
     Dates: start: 19850101
  12. SINGULAIR [Concomitant]
     Indication: ASTHMA
     Route: 048
     Dates: start: 20020101
  13. PREMPRO [Concomitant]
     Route: 065
  14. PREDNISONE [Concomitant]
     Route: 065

REACTIONS (38)
  - ABSCESS JAW [None]
  - ACANTHOSIS [None]
  - ADVERSE DRUG REACTION [None]
  - APHTHOUS STOMATITIS [None]
  - ARTHRITIS [None]
  - ATELECTASIS [None]
  - BREAST CANCER [None]
  - CARPAL TUNNEL SYNDROME [None]
  - CONSTIPATION [None]
  - DRUG INTOLERANCE [None]
  - DRY MOUTH [None]
  - DYSAESTHESIA [None]
  - EAR PAIN [None]
  - FISTULA [None]
  - HYPERKERATOSIS [None]
  - HYPERPLASIA [None]
  - IMPAIRED HEALING [None]
  - JAW DISORDER [None]
  - JAW FRACTURE [None]
  - LOOSE TOOTH [None]
  - LYMPHOEDEMA [None]
  - NEUROPATHY PERIPHERAL [None]
  - ORAL CANDIDIASIS [None]
  - ORAL DISORDER [None]
  - ORAL INFECTION [None]
  - ORAL PAIN [None]
  - ORAL TORUS [None]
  - OSTEOMYELITIS [None]
  - OSTEONECROSIS [None]
  - PAIN [None]
  - RADICULOPATHY [None]
  - SIALOADENITIS [None]
  - SINUS DISORDER [None]
  - SLEEP DISORDER [None]
  - STOMATITIS [None]
  - TOOTHACHE [None]
  - VISION BLURRED [None]
  - VITAMIN B12 DEFICIENCY [None]
